FAERS Safety Report 5601794-X (Version None)
Quarter: 2008Q1

REPORT INFORMATION
  Report Type: 
  Country: None (occurrence: None)
  Receive Date: 20080124
  Receipt Date: 20080115
  Transmission Date: 20080703
  Serious: Yes (Hospitalization, Disabling, Other)
  Sender: FDA-Public Use
  Company Number: US-MERCK-0711USA01858

PATIENT
  Age: 63 Year
  Sex: Female

DRUGS (2)
  1. FOSAMAX [Suspect]
     Indication: OSTEOPOROSIS
     Route: 048
     Dates: start: 19970101, end: 20061001
  2. ALBUTEROL [Concomitant]

REACTIONS (4)
  - JOINT INJURY [None]
  - LUNG DISORDER [None]
  - OSTEOMYELITIS [None]
  - ROAD TRAFFIC ACCIDENT [None]
